FAERS Safety Report 8387161-7 (Version None)
Quarter: 2012Q2

REPORT INFORMATION
  Report Type: 
  Country: None (occurrence: None)
  Receive Date: 20120525
  Receipt Date: 20111214
  Transmission Date: 20120825
  Serious: Yes (Hospitalization)
  Sender: FDA-Public Use
  Company Number: US-ROCHE-1021984

PATIENT
  Sex: Female
  Weight: 45.854 kg

DRUGS (5)
  1. AVASTIN [Suspect]
     Route: 065
     Dates: start: 20111103
  2. AVASTIN [Suspect]
     Route: 065
     Dates: start: 20111121
  3. AVASTIN [Suspect]
     Indication: LUNG NEOPLASM MALIGNANT
     Route: 065
     Dates: start: 20110630
  4. AVASTIN [Suspect]
     Route: 065
     Dates: start: 20111020
  5. AVASTIN [Suspect]
     Route: 065
     Dates: start: 20110930

REACTIONS (3)
  - THERAPY REGIMEN CHANGED [None]
  - UNEVALUABLE EVENT [None]
  - DRUG INTOLERANCE [None]
